FAERS Safety Report 12187021 (Version 1)
Quarter: 2016Q1

REPORT INFORMATION
  Report Type: Spontaneous
  Country: US (occurrence: None)
  Receive Date: 20160316
  Receipt Date: 20160316
  Transmission Date: 20160526
  Serious: No
  Sender: FDA-Public Use
  Company Number: None

PATIENT
  Age: 54 Year
  Sex: Female

DRUGS (1)
  1. DULOXETINE 30 MG LUPIN PHARMACEUTICALS [Suspect]
     Active Substance: DULOXETINE
     Indication: MAJOR DEPRESSION
     Route: 048
     Dates: start: 20151016, end: 20151116

REACTIONS (3)
  - Product substitution issue [None]
  - Nausea [None]
  - Vomiting [None]
